FAERS Safety Report 5501622-7 (Version None)
Quarter: 2007Q4

REPORT INFORMATION
  Report Type: 
  Country: None (occurrence: None)
  Receive Date: 20071026
  Receipt Date: 20071026
  Transmission Date: 20080405
  Serious: Yes (Other)
  Sender: FDA-Public Use
  Company Number: None

PATIENT
  Age: 28 Year
  Sex: Male
  Weight: 68.0396 kg

DRUGS (3)
  1. SEROQUEL XR [Suspect]
     Indication: BRADYPHRENIA
     Dosage: 600MG - UP TO 1000MG 1-3X DAILY PO
     Route: 048
     Dates: start: 20070418, end: 20071024
  2. SEROQUEL XR [Suspect]
     Indication: SLEEP DISORDER
     Dosage: 600MG - UP TO 1000MG 1-3X DAILY PO
     Route: 048
     Dates: start: 20070418, end: 20071024
  3. AMBIEN [Suspect]
     Indication: SLEEP DISORDER
     Dosage: 40MG/ 30MG 1XDAY PO
     Route: 048
     Dates: start: 20070501, end: 20070701

REACTIONS (18)
  - AMNESIA [None]
  - BALANCE DISORDER [None]
  - BLOOD CHOLESTEROL INCREASED [None]
  - CHEST PAIN [None]
  - COMMUNICATION DISORDER [None]
  - CONFUSIONAL STATE [None]
  - DIZZINESS [None]
  - DRUG EFFECT DECREASED [None]
  - DYSARTHRIA [None]
  - FLIGHT OF IDEAS [None]
  - IMPAIRED DRIVING ABILITY [None]
  - INSOMNIA [None]
  - LOSS OF CONSCIOUSNESS [None]
  - MUSCLE SPASTICITY [None]
  - RASH [None]
  - ROAD TRAFFIC ACCIDENT [None]
  - TREMOR [None]
  - WEIGHT INCREASED [None]
